FAERS Safety Report 6662260-6 (Version None)
Quarter: 2010Q1

REPORT INFORMATION
  Report Type: 
  Country: None (occurrence: None)
  Receive Date: 20100329
  Receipt Date: 20100315
  Transmission Date: 20100710
  Serious: Yes (Hospitalization, Other)
  Sender: FDA-Public Use
  Company Number: 2010AP000532

PATIENT
  Age: 37 Year
  Sex: Male

DRUGS (2)
  1. DESMOPRESSIN ACETATE [Suspect]
     Indication: DIABETES INSIPIDUS
     Dosage: 5 MG; 1X; NAS
     Route: 045
     Dates: start: 20100301, end: 20100301
  2. GINKGO BILOBA [Concomitant]

REACTIONS (4)
  - AMNESIA [None]
  - COMA [None]
  - HYPONATRAEMIA [None]
  - OVERDOSE [None]
